FAERS Safety Report 19732633 (Version 1)
Quarter: 2021Q3

REPORT INFORMATION
  Report Type: Spontaneous
  Country: US (occurrence: US)
  Receive Date: 20210823
  Receipt Date: 20210823
  Transmission Date: 20211014
  Serious: No
  Sender: FDA-Public Use
  Company Number: US-ASTRAZENECA-2021A536248

PATIENT
  Age: 953 Month
  Sex: Male
  Weight: 71.2 kg

DRUGS (1)
  1. BYDUREON BCISE [Suspect]
     Active Substance: EXENATIDE
     Indication: DIABETES MELLITUS
     Route: 058
     Dates: start: 202103

REACTIONS (2)
  - Injection site haemorrhage [Unknown]
  - Device breakage [Unknown]

NARRATIVE: CASE EVENT DATE: 202103
